FAERS Safety Report 18178400 (Version 1)
Quarter: 2020Q3

REPORT INFORMATION
  Report Type: Spontaneous
  Country: CN (occurrence: CN)
  Receive Date: 20200820
  Receipt Date: 20200820
  Transmission Date: 20201103
  Serious: Yes (Other)
  Sender: FDA-Public Use
  Company Number: CN-009507513-2008CHN009894

PATIENT
  Age: 63 Year
  Sex: Female
  Weight: 70.5 kg

DRUGS (3)
  1. JANUVIA [Suspect]
     Active Substance: SITAGLIPTIN PHOSPHATE
     Indication: TYPE 2 DIABETES MELLITUS
     Dosage: 1 TABLET
     Route: 048
     Dates: start: 20200510, end: 20200515
  2. GLUCOPHAGE [Suspect]
     Active Substance: METFORMIN HYDROCHLORIDE
     Indication: BLOOD GLUCOSE DECREASED
     Dosage: 1 GRAM, BID
     Route: 048
     Dates: start: 20200317, end: 20200814
  3. ASPIRIN. [Concomitant]
     Active Substance: ASPIRIN
     Indication: PLATELET AGGREGATION TEST
     Dosage: 100 MG, QD
     Route: 048
     Dates: start: 20200317, end: 20200814

REACTIONS (3)
  - Hypoglycaemia [Recovering/Resolving]
  - Palpitations [Recovering/Resolving]
  - Cold sweat [Recovering/Resolving]

NARRATIVE: CASE EVENT DATE: 20200515
